FAERS Safety Report 6770830-X (Version None)
Quarter: 2010Q2

REPORT INFORMATION
  Report Type: 
  Country: None (occurrence: None)
  Receive Date: 20100614
  Receipt Date: 20100614
  Transmission Date: 20101027
  Serious: Yes (Death, Hospitalization)
  Sender: FDA-Public Use
  Company Number: None

PATIENT
  Age: 65 Year
  Sex: Male
  Weight: 73.8 kg

DRUGS (1)
  1. EVEROLIMUS [Suspect]
     Indication: METASTATIC RENAL CELL CARCINOMA
     Dosage: 10 MG EVERY DAY PO
     Route: 048
     Dates: start: 20091228, end: 20100212

REACTIONS (8)
  - ALVEOLITIS ALLERGIC [None]
  - BLUE TOE SYNDROME [None]
  - CELLULITIS [None]
  - CONFUSIONAL STATE [None]
  - DEHYDRATION [None]
  - HYPOPHAGIA [None]
  - METASTASES TO BONE [None]
  - SOMNOLENCE [None]
